FAERS Safety Report 4281415-1 (Version None)
Quarter: 2004Q1

REPORT INFORMATION
  Report Type: 
  Country: None (occurrence: None)
  Receive Date: 20040120
  Receipt Date: 20031009
  Transmission Date: 20041129
  Serious: No
  Sender: FDA-Public Use
  Company Number: 2003-08-1174

PATIENT
  Age: 60 Year
  Sex: Female
  Weight: 90.7194 kg

DRUGS (5)
  1. CLARINEX [Suspect]
     Indication: RASH
     Dosage: ORAL
     Route: 048
  2. PEG-INTRON (PRGINTERFERON ALFA-2B) [Concomitant]
  3. REBETOL [Concomitant]
  4. ZOLOFT [Concomitant]
  5. CLONIDINE [Concomitant]

REACTIONS (3)
  - DRUG INEFFECTIVE [None]
  - EPISTAXIS [None]
  - LIP PAIN [None]
